FAERS Safety Report 13840484 (Version 1)
Quarter: 2017Q3

REPORT INFORMATION
  Report Type: Spontaneous
  Country: US (occurrence: US)
  Receive Date: 20170807
  Receipt Date: 20170807
  Transmission Date: 20171127
  Serious: Yes (Death)
  Sender: FDA-Public Use
  Company Number: US-LNK INTERNATIONAL, INC.-2024274

PATIENT
  Sex: Male

DRUGS (2)
  1. ANTI-DIARRHEAL [Suspect]
     Active Substance: LOPERAMIDE HYDROCHLORIDE
  2. OFEV [Concomitant]
     Active Substance: NINTEDANIB

REACTIONS (2)
  - Intestinal obstruction [None]
  - Death [None]
